FAERS Safety Report 17430231 (Version 1)
Quarter: 2020Q1

REPORT INFORMATION
  Report Type: Spontaneous
  Country: CA (occurrence: CA)
  Receive Date: 20200215
  Receipt Date: 20200215
  Transmission Date: 20200409
  Serious: Yes (Other)
  Sender: FDA-Public Use
  Company Number: CA-ROCHE-2549905

PATIENT

DRUGS (7)
  1. RITUXIMAB. [Suspect]
     Active Substance: RITUXIMAB
     Dosage: 7.0 YEARS
     Route: 041
  2. RITUXIMAB. [Suspect]
     Active Substance: RITUXIMAB
     Indication: CHRONIC GRAFT VERSUS HOST DISEASE IN SKIN
     Route: 041
  3. MYCOPHENOLIC ACID. [Suspect]
     Active Substance: MYCOPHENOLIC ACID
     Indication: CHRONIC GRAFT VERSUS HOST DISEASE IN SKIN
     Route: 065
  4. TACROLIMUS. [Suspect]
     Active Substance: TACROLIMUS
     Indication: CHRONIC GRAFT VERSUS HOST DISEASE IN SKIN
     Route: 065
  5. CICLOSPORIN [Suspect]
     Active Substance: CYCLOSPORINE
     Indication: CHRONIC GRAFT VERSUS HOST DISEASE IN SKIN
     Route: 065
  6. IMATINIB. [Suspect]
     Active Substance: IMATINIB MESYLATE
     Indication: CHRONIC GRAFT VERSUS HOST DISEASE IN SKIN
     Route: 065
  7. PREDNISONE. [Suspect]
     Active Substance: PREDNISONE
     Indication: CHRONIC GRAFT VERSUS HOST DISEASE IN SKIN
     Route: 065

REACTIONS (3)
  - Toxicity to various agents [Unknown]
  - Off label use [Unknown]
  - Product use in unapproved indication [Unknown]
